FAERS Safety Report 6845239-0 (Version None)
Quarter: 2010Q3

REPORT INFORMATION
  Report Type: 
  Country: None (occurrence: None)
  Receive Date: 20100715
  Receipt Date: 20070819
  Transmission Date: 20110219
  Serious: No
  Sender: FDA-Public Use
  Company Number: US-PFIZER INC-2007069553

PATIENT
  Sex: Female
  Weight: 111.4 kg

DRUGS (8)
  1. CHANTIX [Suspect]
     Indication: SMOKING CESSATION THERAPY
  2. PROTONIX [Concomitant]
  3. ABILIFY [Concomitant]
     Indication: MENTAL DISORDER
  4. DEPAKOTE [Concomitant]
     Indication: MENTAL DISORDER
     Route: 048
  5. DIPHENHYDRAMINE [Concomitant]
  6. METFORMIN HCL [Concomitant]
     Indication: GLUCOSE TOLERANCE IMPAIRED
     Route: 048
  7. LISINOPRIL [Concomitant]
  8. HUMULIN 70/30 [Concomitant]

REACTIONS (3)
  - ABNORMAL DREAMS [None]
  - CONSTIPATION [None]
  - DIARRHOEA [None]
